FAERS Safety Report 15991214 (Version 2)
Quarter: 2019Q1

REPORT INFORMATION
  Report Type: Spontaneous
  Country: IN (occurrence: IN)
  Receive Date: 20190221
  Receipt Date: 20190221
  Transmission Date: 20190418
  Serious: Yes (Other)
  Sender: FDA-Public Use
  Company Number: PHHY2019IN034897

PATIENT
  Age: 38 Year
  Sex: Male

DRUGS (4)
  1. ATROPINE. [Concomitant]
     Active Substance: ATROPINE
     Indication: PRODUCT USED FOR UNKNOWN INDICATION
     Dosage: 1 DF, TID IN BOTH EYES
     Route: 047
  2. BRIMONIDINE [Suspect]
     Active Substance: BRIMONIDINE TARTRATE
     Indication: GLAUCOMA
     Dosage: BRIMONIDINE TARTRATE 0.2% + TIMOLOL MALEATE OPHTHALMIC SOLUTION 0.5% TWICE DAILY IN BOTH EYES
     Route: 047
  3. PREDNISOLONE ACETATE. [Suspect]
     Active Substance: PREDNISOLONE ACETATE
     Indication: PRODUCT USED FOR UNKNOWN INDICATION
     Dosage: UNK, QID IN BOTH EYES
     Route: 047
  4. TOPIRAMATE. [Suspect]
     Active Substance: TOPIRAMATE
     Indication: HEADACHE
     Dosage: 25 MG, QD
     Route: 048

REACTIONS (1)
  - Retinal detachment [Recovered/Resolved]
